FAERS Safety Report 10373896 (Version 1)
Quarter: 2014Q1

REPORT INFORMATION
  Report Type: Spontaneous
  Country: US (occurrence: None)
  Receive Date: 20140306
  Receipt Date: 20140306
  Transmission Date: 20141002
  Serious: Yes (Disabling, Other)
  Sender: FDA-Public Use
  Company Number: 163-21880-13010304

PATIENT
  Age: 79 Year
  Sex: Male

DRUGS (13)
  1. REVLIMID (LENALIDOMIDE) (10 MILLIGRAM, CAPSULES) [Suspect]
     Indication: MYELODYSPLASTIC SYNDROME
     Route: 048
     Dates: start: 20121224, end: 20130110
  2. METFORMIN HCL (METFORMIN HYDROCHLORIDE) (TABLETS) [Concomitant]
  3. CADUET (TABLETS) [Concomitant]
  4. LISINOPRIL (TABLETS) (LISINOPRIL) [Concomitant]
  5. FUROSEMIDE (TABLETS) [Concomitant]
  6. GLIMEPIRIDE (TABLETS) [Concomitant]
  7. LUTEIN (XANTOFYL) (CAPSULES) [Concomitant]
  8. KLOR-CON (POTASSIUM CHLORIDE) (TABLETS) [Concomitant]
  9. CVS VITAMIN C (ASCORBIC ACID) (TABLETS) [Concomitant]
  10. FERROUS SULFATE (TABLETS) [Concomitant]
  11. ONDANSETRON (TABLETS) [Concomitant]
  12. Z-PAK (AZITHROMYCIN) (TABLETS) [Concomitant]
  13. KEFLEX (CEFALEXIN MONOHYDRATE) (CACHET) [Concomitant]

REACTIONS (1)
  - Full blood count decreased [None]
